FAERS Safety Report 6749060-3 (Version None)
Quarter: 2010Q2

REPORT INFORMATION
  Report Type: 
  Country: None (occurrence: None)
  Receive Date: 20100601
  Receipt Date: 20100521
  Transmission Date: 20101027
  Serious: Yes (Hospitalization)
  Sender: FDA-Public Use
  Company Number: US-BAYER-200922895NA

PATIENT
  Age: 41 Year
  Sex: Female

DRUGS (4)
  1. MAGNEVIST [Suspect]
     Indication: ARTHROGRAM
     Dosage: AS USED: 1 ML
     Route: 014
     Dates: start: 20090501, end: 20090501
  2. LIDOCAINE [Suspect]
     Indication: X-RAY
     Route: 014
     Dates: start: 20090501, end: 20090501
  3. OPTIRAY 350 [Suspect]
     Indication: X-RAY LIMB
     Route: 014
     Dates: start: 20090501, end: 20090501
  4. NORMAL SALINE [Suspect]
     Indication: ARTHROGRAM
     Dosage: AS USED: 9 ML
     Route: 014
     Dates: start: 20090501, end: 20090501

REACTIONS (4)
  - OFF LABEL USE [None]
  - PRODUCT QUALITY ISSUE [None]
  - SEPTIC ARTHRITIS STAPHYLOCOCCAL [None]
  - WRONG TECHNIQUE IN DRUG USAGE PROCESS [None]
